FAERS Safety Report 5054728-3 (Version None)
Quarter: 2006Q2

REPORT INFORMATION
  Report Type: 
  Country: None (occurrence: None)
  Receive Date: 20060614
  Receipt Date: 20060313
  Transmission Date: 20061013
  Serious: No
  Sender: FDA-Public Use
  Company Number: US200603003518

PATIENT
  Age: 75 Year
  Sex: Male

DRUGS (5)
  1. CIALIS [Suspect]
     Indication: ERECTILE DYSFUNCTION
     Dosage: 20 MG, AS NEEDED
     Dates: start: 20060308
  2. MULTIVITAMINS (ASCORBIC ACID, ERGOCALCIFEROL, FOLIC ACID, NICOTINAMIDE [Concomitant]
  3. VITAMIN B NOS (VITAMIN B NOS) [Concomitant]
  4. GLUCOSAMINE (GLUCOSAMINE) [Concomitant]
  5. MSM /USA/ (METHYLSULFONYLMETHANE) [Concomitant]

REACTIONS (3)
  - BACK PAIN [None]
  - INSOMNIA [None]
  - MYALGIA [None]
